FAERS Safety Report 6714234-4 (Version None)
Quarter: 2010Q2

REPORT INFORMATION
  Report Type: 
  Country: None (occurrence: None)
  Receive Date: 20100506
  Receipt Date: 20100428
  Transmission Date: 20101027
  Serious: Yes (Other)
  Sender: FDA-Public Use
  Company Number: FR-PFIZER INC-2010053373

PATIENT
  Age: 57 Year
  Sex: Female

DRUGS (8)
  1. LYRICA [Suspect]
     Dosage: 75 MG, 2X/DAY
     Route: 048
     Dates: start: 20091030, end: 20091104
  2. PLAVIX [Concomitant]
     Dosage: UNK
  3. OLMESARTAN [Concomitant]
     Dosage: UNK
  4. MEDIATOR [Concomitant]
     Dosage: UNK
  5. GLUCOPHAGE [Concomitant]
     Dosage: UNK
  6. NOVORAPID [Concomitant]
     Dosage: UNK
  7. INSULIN DETEMIR [Concomitant]
     Dosage: UNK
  8. CRESTOR [Concomitant]
     Dosage: UNK

REACTIONS (3)
  - BLOOD AMYLASE INCREASED [None]
  - LIPASE INCREASED [None]
  - PANCREATITIS ACUTE [None]
